FAERS Safety Report 8377942-8 (Version None)
Quarter: 2012Q2

REPORT INFORMATION
  Report Type: 
  Country: None (occurrence: None)
  Receive Date: 20120522
  Receipt Date: 20120515
  Transmission Date: 20120825
  Serious: Yes (Hospitalization, Other)
  Sender: FDA-Public Use
  Company Number: US-TEVA-333809USA

PATIENT
  Sex: Female
  Weight: 62.652 kg

DRUGS (15)
  1. ESZOPICLONE [Concomitant]
     Dosage: 1 TABLET AT BEDTIME AS NEEDED MDD1
     Route: 048
  2. MIRTAZAPINE [Concomitant]
     Dosage: 15 MILLIGRAM;
     Route: 048
  3. IBUPROFEN [Concomitant]
     Dosage: 1 TABLET EVERY 8 HOURS AS NEEDED
     Route: 048
  4. OLOPATADINE HCL [Concomitant]
     Dosage: 1 GTT EACH EYE DAILY
     Route: 047
  5. HYDROCODONE BITARTRATE + ACETAMINOPHEN [Concomitant]
     Indication: PAIN
     Dosage: 5MG/325MG EVERY 4-6 HOURS AS NEEDED FOR PAIN MDD4
     Route: 048
  6. CARMELLOSE SODIUM [Concomitant]
     Dosage: 1-2 DROPS TO AFFECTED EYE(S) 3-4 X DAILY PRN
     Route: 047
  7. COPAXONE [Suspect]
     Indication: MULTIPLE SCLEROSIS
     Dosage: 20 MILLIGRAM;
     Route: 058
     Dates: start: 20051213
  8. CYCLOSPORINE [Concomitant]
     Dosage: 1 DROP BOTH EYES TWICE DAILY
     Route: 047
  9. NASAL DECONGESTANTS FOR TOPICAL USE [Concomitant]
     Dosage: THROUGH FALL AND WINTER
  10. FLUTICASONE PROPIONATE [Concomitant]
     Dosage: 2 SPRAYS IN EACH NOSTRIL DAILY
     Route: 045
  11. OMEPRAZOLE [Concomitant]
     Dosage: 40 MILLIGRAM;
     Route: 048
  12. DOCUSATE SODIUM [Concomitant]
  13. HYPROMELLOSE [Concomitant]
     Dosage: 1-2 DROPS TO AFFECTED EYE(S) 3-4 TIMES DAILY PRN
     Route: 047
  14. ACETAMINOPHEN [Concomitant]
     Dosage: 1 TABLET EVERY 4-6 HOURS PRN
     Route: 048
  15. ESCITALOPRAM OXALATE [Concomitant]
     Dosage: 1 TABLET TWICE DAILY
     Route: 048

REACTIONS (9)
  - ANXIETY [None]
  - PANIC ATTACK [None]
  - DYSPHAGIA [None]
  - PARAESTHESIA [None]
  - ASTHENIA [None]
  - DYSPNOEA [None]
  - CHEST PAIN [None]
  - MULTIPLE SCLEROSIS RELAPSE [None]
  - HOT FLUSH [None]
